FAERS Safety Report 7223793-7 (Version None)
Quarter: 2011Q1

REPORT INFORMATION
  Report Type: 
  Country: None (occurrence: None)
  Receive Date: 20110112
  Receipt Date: 20101129
  Transmission Date: 20110831
  Serious: No
  Sender: FDA-Public Use
  Company Number: US-ALLERGAN-1015407US

PATIENT
  Age: 58 Year
  Sex: Female

DRUGS (2)
  1. RESTASIS [Suspect]
     Indication: DRY EYE
     Dosage: 1 GTT, BID
     Dates: start: 20080301
  2. NAPROXEN [Suspect]
     Indication: ARTHRITIS
     Dosage: UNK

REACTIONS (3)
  - ALOPECIA [None]
  - PRURITUS [None]
  - LICHEN PLANUS [None]
